FAERS Safety Report 9461224 (Version 1)
Quarter: 2013Q3

REPORT INFORMATION
  Report Type: Spontaneous
  Country: US (occurrence: None)
  Receive Date: 20130814
  Receipt Date: 20130814
  Transmission Date: 20140515
  Serious: Yes (Disabling)
  Sender: FDA-Public Use
  Company Number: None

PATIENT
  Age: 56 Year
  Sex: Male
  Weight: 79.83 kg

DRUGS (1)
  1. SULFAMETH/TRIMETHOPRIM 800/160 TABS [Suspect]
     Indication: INFECTED CYST
     Dosage: 160/MG 1 TWICE DAILY MOUTH
     Route: 048
     Dates: start: 20130623, end: 20130701

REACTIONS (6)
  - Hypersensitivity [None]
  - Pyrexia [None]
  - Headache [None]
  - Nausea [None]
  - Herpes zoster [None]
  - Impaired work ability [None]
